FAERS Safety Report 20650437 (Version 1)
Quarter: 2022Q1

REPORT INFORMATION
  Report Type: Spontaneous
  Country: LT (occurrence: LT)
  Receive Date: 20220329
  Receipt Date: 20220329
  Transmission Date: 20220423
  Serious: Yes (Other)
  Sender: FDA-Public Use
  Company Number: None

PATIENT
  Age: 62 Year
  Sex: Female
  Weight: 90 kg

DRUGS (4)
  1. CAPTOPRIL [Suspect]
     Active Substance: CAPTOPRIL
     Indication: Blood pressure increased
     Dosage: UNK
  2. PERINDOPRIL [Suspect]
     Active Substance: PERINDOPRIL
     Indication: Blood pressure increased
     Dosage: 6 MILLIGRAM, QD
     Route: 048
     Dates: start: 20200126, end: 20200208
  3. PERINDOPRIL [Suspect]
     Active Substance: PERINDOPRIL
     Dosage: 4 MILLIGRAM, QD
     Route: 048
     Dates: start: 20200126, end: 20200208
  4. METOPROLOL SUCCINATE [Concomitant]
     Active Substance: METOPROLOL SUCCINATE
     Indication: Heart rate increased
     Dosage: 23.75 MILLIGRAM, QD
     Dates: start: 2011

REACTIONS (14)
  - Mood altered [Recovering/Resolving]
  - Asthenia [Recovering/Resolving]
  - Blood pressure increased [Recovering/Resolving]
  - Hypokinesia [Recovering/Resolving]
  - Malaise [Recovering/Resolving]
  - Blood pressure decreased [Recovering/Resolving]
  - Heart rate increased [Recovering/Resolving]
  - Angina pectoris [Recovering/Resolving]
  - Dyspnoea [Recovering/Resolving]
  - Electrocardiogram abnormal [Recovering/Resolving]
  - Product substitution issue [Recovering/Resolving]
  - Limb discomfort [Not Recovered/Not Resolved]
  - Chest pain [Recovering/Resolving]
  - Loss of personal independence in daily activities [Recovering/Resolving]

NARRATIVE: CASE EVENT DATE: 20220131
